FAERS Safety Report 5840056-2 (Version None)
Quarter: 2008Q3

REPORT INFORMATION
  Report Type: 
  Country: None (occurrence: None)
  Receive Date: 20080811
  Receipt Date: 20080731
  Transmission Date: 20090109
  Serious: Yes (Hospitalization)
  Sender: FDA-Public Use
  Company Number: US-EISAI MEDIAL RESEARCH-E3810-02055-SPO-US

PATIENT
  Age: 61 Year
  Sex: Female
  Weight: 112 kg

DRUGS (11)
  1. ACIPHEX [Suspect]
     Indication: REFLUX OESOPHAGITIS
     Route: 048
     Dates: start: 20080501
  2. CRESTOR [Concomitant]
     Indication: BLOOD CHOLESTEROL
     Route: 048
  3. METFORMIN HCL [Concomitant]
     Indication: DIABETES MELLITUS
     Route: 048
     Dates: start: 20070101
  4. STEROIDS [Concomitant]
     Indication: EMPHYSEMA
     Route: 048
     Dates: start: 20040101
  5. ESTROGENIC SUBSTANCE [Concomitant]
     Indication: MENOPAUSE
     Route: 061
  6. VITAMIN TAB [Concomitant]
     Indication: SUPPLEMENTATION THERAPY
     Dosage: 1 X TABLET
     Route: 048
     Dates: start: 20040101
  7. VITAMIN D [Concomitant]
     Indication: SUPPLEMENTATION THERAPY
     Dosage: 1 X TABLET
     Route: 048
     Dates: start: 20040101
  8. CALCIUM [Concomitant]
     Indication: SUPPLEMENTATION THERAPY
     Dosage: 1 X TABLET
     Route: 048
     Dates: start: 20080701
  9. SINGULAIR [Concomitant]
     Indication: HYPERSENSITIVITY
  10. SPIRIVA [Concomitant]
     Indication: EMPHYSEMA
  11. ADVAIR DISKUS 100/50 [Concomitant]
     Indication: EMPHYSEMA

REACTIONS (3)
  - BREAST ENLARGEMENT [None]
  - EMPHYSEMA [None]
  - WEIGHT INCREASED [None]
